FAERS Safety Report 7530383-5 (Version None)
Quarter: 2011Q2

REPORT INFORMATION
  Report Type: 
  Country: None (occurrence: None)
  Receive Date: 20110607
  Receipt Date: 20110526
  Transmission Date: 20111010
  Serious: Yes (Hospitalization, Other)
  Sender: FDA-Public Use
  Company Number: DE-ELI_LILLY_AND_COMPANY-DE201105007517

PATIENT
  Sex: Male

DRUGS (6)
  1. OMEPRAZOLE [Concomitant]
     Dosage: UNK
     Route: 065
  2. NOVALGIN                           /06276704/ [Concomitant]
     Dosage: UNK
     Route: 065
  3. FUSID [Concomitant]
     Dosage: UNK
     Route: 065
  4. RAMIPRIL [Concomitant]
     Dosage: UNK
     Route: 065
  5. FORTEO [Suspect]
     Indication: OSTEOPOROSIS
     Dosage: UNK, QD
     Route: 058
     Dates: start: 20101109, end: 20110415
  6. DAXAS [Concomitant]
     Dosage: UNK
     Route: 065

REACTIONS (4)
  - LUNG NEOPLASM MALIGNANT [None]
  - ARTHRALGIA [None]
  - METASTASIS [None]
  - LOWER LIMB FRACTURE [None]
